FAERS Safety Report 8048302-4 (Version None)
Quarter: 2012Q1

REPORT INFORMATION
  Report Type: 
  Country: None (occurrence: None)
  Receive Date: 20120117
  Receipt Date: 20120110
  Transmission Date: 20120608
  Serious: No
  Sender: FDA-Public Use
  Company Number: US-PFIZER INC-2012008424

PATIENT
  Sex: Female

DRUGS (3)
  1. PRAVACHOL [Concomitant]
  2. GLUCOPHAGE [Concomitant]
  3. NORVASC [Suspect]
     Dosage: 5 MG, UNK

REACTIONS (3)
  - ALOPECIA [None]
  - BLOOD PRESSURE INADEQUATELY CONTROLLED [None]
  - INCORRECT DOSE ADMINISTERED [None]
